FAERS Safety Report 10149914 (Version 1)
Quarter: 2014Q2

REPORT INFORMATION
  Report Type: Spontaneous
  Country: ES (occurrence: ES)
  Receive Date: 20140502
  Receipt Date: 20140502
  Transmission Date: 20141212
  Serious: Yes (Hospitalization)
  Sender: FDA-Public Use
  Company Number: PHHY2014ES050899

PATIENT
  Age: 97 Year
  Sex: Male

DRUGS (7)
  1. SINTROM [Suspect]
     Dosage: UNK UKN, UNK
     Route: 048
     Dates: start: 20130430, end: 20130703
  2. LEVOFLOXACIN [Interacting]
     Indication: RESPIRATORY TRACT INFECTION
     Dosage: 500 MG, DAILY
     Route: 042
     Dates: start: 20130703, end: 20130710
  3. DIGOXIN [Concomitant]
     Indication: ATRIAL FIBRILLATION
     Dosage: 0.25 MG, QD
     Route: 048
     Dates: start: 20130430
  4. OMEPRAZOLE [Concomitant]
     Indication: PROPHYLAXIS AGAINST GASTROINTESTINAL ULCER
     Dosage: 20 MG, QD
     Route: 048
     Dates: start: 20130430
  5. ENALAPRIL [Concomitant]
     Indication: HYPERTENSION
     Dosage: 10 MG, BID (20 MG)
     Route: 048
     Dates: start: 2009
  6. SPIRIVA [Concomitant]
     Indication: CHRONIC OBSTRUCTIVE PULMONARY DISEASE
     Dosage: UNK UKN, UNK
     Route: 055
     Dates: start: 20121011
  7. EZETIMIBE [Concomitant]
     Indication: DYSLIPIDAEMIA
     Dosage: 10 MG, QD
     Route: 048
     Dates: start: 20130430

REACTIONS (3)
  - Anaemia [Recovering/Resolving]
  - Coagulopathy [Recovered/Resolved]
  - Drug interaction [Unknown]
